FAERS Safety Report 8508275-4 (Version None)
Quarter: 2012Q2

REPORT INFORMATION
  Report Type: 
  Country: None (occurrence: None)
  Receive Date: 20120405
  Receipt Date: 20090224
  Transmission Date: 20120825
  Serious: Yes (Other)
  Sender: FDA-Public Use
  Company Number: PHEH2009US01183

PATIENT
  Age: 80 Year
  Sex: Female

DRUGS (6)
  1. ICAPS (MINERALS NOS, VITAMINS NOS) [Concomitant]
  2. VITAMIN D [Concomitant]
  3. PROTONIX [Concomitant]
  4. RECLAST [Suspect]
     Indication: OSTEOPOROSIS
     Dosage: 5 MG, YEARLY, INTRAVENOUS
     Route: 042
     Dates: start: 20080924
  5. IBUPROFEN (ADVIL) [Concomitant]
  6. ASPIRIN [Concomitant]

REACTIONS (8)
  - MYALGIA [None]
  - HEADACHE [None]
  - PAIN [None]
  - GAIT DISTURBANCE [None]
  - PARAESTHESIA [None]
  - ARTHRITIS [None]
  - MUSCULOSKELETAL STIFFNESS [None]
  - ARTHRALGIA [None]
